FAERS Safety Report 5533439-1 (Version None)
Quarter: 2007Q4

REPORT INFORMATION
  Report Type: 
  Country: None (occurrence: None)
  Receive Date: 20071204
  Receipt Date: 20071126
  Transmission Date: 20080405
  Serious: Yes (Other)
  Sender: FDA-Public Use
  Company Number: FR-PFIZER INC-2007100335

PATIENT
  Age: 36 Year
  Sex: Female

DRUGS (3)
  1. CHAMPIX [Suspect]
     Indication: SMOKING CESSATION THERAPY
  2. ATARAX [Concomitant]
     Indication: INSOMNIA
  3. ATARAX [Concomitant]
     Indication: ABNORMAL DREAMS

REACTIONS (3)
  - ABNORMAL DREAMS [None]
  - INSOMNIA [None]
  - MANIA [None]
